FAERS Safety Report 11875030 (Version 4)
Quarter: 2017Q4

REPORT INFORMATION
  Report Type: Report from Study
  Country: UA (occurrence: UA)
  Receive Date: 20151229
  Receipt Date: 20171010
  Transmission Date: 20180320
  Serious: Yes (Death)
  Sender: FDA-Public Use
  Company Number: UA-ROCHE-1684652

PATIENT
  Age: 65 Year
  Sex: Male
  Weight: 62 kg

DRUGS (8)
  1. LEVOFLOXACIN. [Concomitant]
     Active Substance: LEVOFLOXACIN
     Indication: ANAL ABSCESS
     Route: 065
     Dates: start: 20151123, end: 20151129
  2. ASCORBIC ACID/FERROUS SULFATE [Concomitant]
     Indication: ANAEMIA
     Route: 065
     Dates: start: 20151028, end: 20151201
  3. NITROXOLINE [Concomitant]
     Active Substance: NITROXOLINE
     Indication: URINARY INCONTINENCE
     Route: 065
     Dates: start: 20151124, end: 20151130
  4. OXYBUTYNIN. [Concomitant]
     Active Substance: OXYBUTYNIN CHLORIDE
     Indication: URINARY INCONTINENCE
     Route: 065
     Dates: start: 20151124, end: 20151130
  5. BEVACIZUMAB. [Suspect]
     Active Substance: BEVACIZUMAB
     Indication: NON-SMALL CELL LUNG CANCER STAGE IV
     Dosage: MOST RECENT DOSE (930 MG) PRIOR TO THE EVENT WAS ON 23/DEC/2015
     Route: 042
     Dates: start: 20150825
  6. CARBOPLATIN. [Suspect]
     Active Substance: CARBOPLATIN
     Indication: NON-SMALL CELL LUNG CANCER STAGE IV
     Dosage: AREA UNDER THE CONCENTRATION-TIME CURVE (AUC) 6 (MG/ML/MIN) ON DAY 1 OF EACH 21-DAY CYCLE?MOST RECEN
     Route: 042
     Dates: start: 20150825
  7. PACLITAXEL. [Suspect]
     Active Substance: PACLITAXEL
     Indication: NON-SMALL CELL LUNG CANCER STAGE IV
     Dosage: MOST RECENT DOSE (370 MG) PRIOR TO THE EVENT WAS ON 28/OCT/2015
     Route: 042
     Dates: start: 20150825
  8. ADEMETIONINE [Concomitant]
     Active Substance: ADEMETIONINE
     Indication: ALANINE AMINOTRANSFERASE INCREASED
     Route: 065
     Dates: start: 20151223

REACTIONS (1)
  - Pulmonary embolism [Fatal]

NARRATIVE: CASE EVENT DATE: 20151224
